FAERS Safety Report 21029972 (Version 1)
Quarter: 2022Q3

REPORT INFORMATION
  Report Type: Spontaneous
  Country: US (occurrence: None)
  Receive Date: 20220701
  Receipt Date: 20220701
  Transmission Date: 20221026
  Serious: No
  Sender: FDA-Public Use
  Company Number: US-ROCHE-2955668

PATIENT
  Sex: Female
  Weight: 61.290 kg

DRUGS (2)
  1. ACTEMRA [Suspect]
     Active Substance: TOCILIZUMAB
     Indication: Rheumatoid arthritis
     Dosage: STRENGTH:162 MG/0.9 ML
     Route: 058
     Dates: start: 202108
  2. ACTEMRA [Suspect]
     Active Substance: TOCILIZUMAB

REACTIONS (6)
  - Anxiety [Unknown]
  - Product complaint [Unknown]
  - Unevaluable event [Unknown]
  - Device difficult to use [Unknown]
  - Product dose omission issue [Unknown]
  - Drug delivery system issue [Unknown]
